FAERS Safety Report 9417421 (Version 1)
Quarter: 2013Q3

REPORT INFORMATION
  Report Type: Spontaneous
  Country: US (occurrence: None)
  Receive Date: 20130722
  Receipt Date: 20130722
  Transmission Date: 20140515
  Serious: No
  Sender: FDA-Public Use
  Company Number: None

PATIENT
  Age: 82 Year
  Sex: Female
  Weight: 74.84 kg

DRUGS (2)
  1. BUPROPION [Suspect]
  2. WELLBUTRIN XL [Suspect]

REACTIONS (2)
  - Drug ineffective [None]
  - Product quality issue [None]
